FAERS Safety Report 18516422 (Version 1)
Quarter: 2020Q4

REPORT INFORMATION
  Report Type: Report from Study
  Country: US (occurrence: US)
  Receive Date: 20201118
  Receipt Date: 20201118
  Transmission Date: 20210114
  Serious: No
  Sender: FDA-Public Use
  Company Number: US-BIOVITRUM-2020US4130

PATIENT
  Age: 37 Year
  Sex: Female

DRUGS (2)
  1. KINERET [Suspect]
     Active Substance: ANAKINRA
     Route: 058
     Dates: start: 20190625
  2. KINERET [Suspect]
     Active Substance: ANAKINRA
     Indication: PERICARDIAL DISEASE
     Route: 058
     Dates: start: 20190626

REACTIONS (3)
  - Rash macular [Unknown]
  - Product dose omission issue [Unknown]
  - Off label use [Not Recovered/Not Resolved]

NARRATIVE: CASE EVENT DATE: 20190625
